FAERS Safety Report 5071729-X (Version None)
Quarter: 2006Q3

REPORT INFORMATION
  Report Type: 
  Country: None (occurrence: None)
  Receive Date: 20060801
  Receipt Date: 20060719
  Transmission Date: 20061208
  Serious: Yes (Other)
  Sender: FDA-Public Use
  Company Number: S06-FRA-02374-01

PATIENT
  Age: 61 Year
  Sex: Female

DRUGS (5)
  1. SEROPLEX (ESCITALOPRAM) [Suspect]
     Dosage: 10 MG QD PO
     Route: 048
     Dates: start: 20060215, end: 20060517
  2. CALTRATE (CALCIUM CARBONATE) [Concomitant]
  3. ACTONEL [Concomitant]
  4. ALPRAZOLAM [Concomitant]
  5. ARIMIDEX [Concomitant]

REACTIONS (5)
  - RASH [None]
  - SKIN BURNING SENSATION [None]
  - SKIN DISCOLOURATION [None]
  - SKIN INFLAMMATION [None]
  - VASCULAR SKIN DISORDER [None]
